FAERS Safety Report 10762066 (Version 1)
Quarter: 2015Q1

REPORT INFORMATION
  Report Type: Spontaneous
  Country: US (occurrence: None)
  Receive Date: 20150128
  Receipt Date: 20150128
  Transmission Date: 20150721
  Serious: Yes (Hospitalization, Other)
  Sender: FDA-Public Use
  Company Number: 1483794

PATIENT
  Age: 43 Year
  Sex: Male

DRUGS (14)
  1. ACYCLOVIR ??? [Concomitant]
  2. VORICONAZOLE. [Concomitant]
     Active Substance: VORICONAZOLE
  3. MARINOL (UNITED STATES) (DRONABINOL) [Concomitant]
  4. RITUXAN [Suspect]
     Active Substance: RITUXIMAB
     Indication: CHRONIC LYMPHOCYTIC LEUKAEMIA
  5. FLUDARABINE [Suspect]
     Active Substance: FLUDARABINE PHOSPHATE
     Indication: CHRONIC LYMPHOCYTIC LEUKAEMIA
  6. CYCLOPHOSPHAMIDE (CYCLOPHOSPHAMIDE) [Suspect]
     Active Substance: CYCLOPHOSPHAMIDE
     Indication: CHRONIC LYMPHOCYTIC LEUKAEMIA
  7. REGLAN [Concomitant]
     Active Substance: METOCLOPRAMIDE HYDROCHLORIDE
  8. PROGRAF [Concomitant]
     Active Substance: TACROLIMUS\TACROLIMUS ANHYDROUS
  9. KYTRIL (GRANISETRON HYDROCHLORIDE) [Concomitant]
  10. ATIVAN [Concomitant]
     Active Substance: LORAZEPAM
  11. CLARITIN [Concomitant]
     Active Substance: LORATADINE
  12. TRIAMCINOLONE [Concomitant]
     Active Substance: TRIAMCINOLONE
  13. CIPROFLOXACIN. [Concomitant]
     Active Substance: CIPROFLOXACIN
  14. OXYCODONE [Concomitant]
     Active Substance: OXYCODONE

REACTIONS (3)
  - Abdominal pain upper [None]
  - Oral infection [None]
  - Rash [None]
